FAERS Safety Report 8689109 (Version 3)
Quarter: 2013Q1

REPORT INFORMATION
  Report Type: Spontaneous
  Country: US (occurrence: US)
  Receive Date: 20120727
  Receipt Date: 20130120
  Transmission Date: 20140127
  Serious: No
  Sender: FDA-Public Use
  Company Number: US-ASTRAZENECA-2011SE74790

PATIENT
  Age: 63 Year
  Sex: Female

DRUGS (6)
  1. SEROQUEL [Suspect]
     Indication: DEPRESSION
     Route: 048
  2. SEROQUEL [Suspect]
     Indication: BIPOLAR DISORDER
     Route: 048
  3. SEROQUEL [Suspect]
     Indication: ANXIETY
     Route: 048
  4. SEROQUEL [Suspect]
     Indication: DEPRESSION
     Route: 048
  5. SEROQUEL [Suspect]
     Indication: BIPOLAR DISORDER
     Route: 048
  6. SEROQUEL [Suspect]
     Indication: ANXIETY
     Route: 048

REACTIONS (11)
  - Ear pain [Unknown]
  - Malaise [Unknown]
  - Headache [Unknown]
  - Sinusitis [Unknown]
  - Middle ear effusion [Unknown]
  - Anxiety [Unknown]
  - Road traffic accident [Unknown]
  - Ear discomfort [Unknown]
  - Nasal discomfort [Unknown]
  - Hearing impaired [Unknown]
  - Drug ineffective [Unknown]
